FAERS Safety Report 9358918 (Version 1)
Quarter: 2013Q2

REPORT INFORMATION
  Report Type: Spontaneous
  Country: CH (occurrence: CH)
  Receive Date: 20130620
  Receipt Date: 20130620
  Transmission Date: 20140414
  Serious: Yes (Hospitalization)
  Sender: FDA-Public Use
  Company Number: CH-TEVA-411764ISR

PATIENT
  Age: 79 Year
  Sex: Female

DRUGS (7)
  1. METFORMIN [Suspect]
     Indication: DIABETES MELLITUS
     Dosage: 2000 MILLIGRAM DAILY;
     Route: 065
  2. TORASEMIDE [Suspect]
     Indication: PRODUCT USED FOR UNKNOWN INDICATION
     Dosage: TORASEMIDE 5 MG
     Route: 065
  3. RAMIPRIL [Suspect]
     Indication: PRODUCT USED FOR UNKNOWN INDICATION
     Dosage: RAMIPRIL 5 MG
     Route: 065
  4. HYDROCHLOROTHIAZIDE [Suspect]
     Indication: PRODUCT USED FOR UNKNOWN INDICATION
     Dosage: HYDROCHLOROTHIAZIDE 25 MG
     Route: 065
  5. LANTUS [Concomitant]
     Indication: DIABETES MELLITUS
     Dosage: LANTUS 46 U
     Route: 065
  6. BISOPROLOL [Concomitant]
     Indication: PRODUCT USED FOR UNKNOWN INDICATION
     Dosage: BISOPROLOL 5 MG
     Route: 065
  7. ATORVASTATIN [Concomitant]
     Indication: PRODUCT USED FOR UNKNOWN INDICATION
     Dosage: ATORVASTATIN 20 MG
     Route: 065

REACTIONS (4)
  - Toxicity to various agents [Unknown]
  - Lactic acidosis [Recovering/Resolving]
  - Renal failure acute [Unknown]
  - Hypoglycaemia [Recovered/Resolved]
